FAERS Safety Report 11945392 (Version 3)
Quarter: 2019Q1

REPORT INFORMATION
  Report Type: Report from Study
  Country: BR (occurrence: BR)
  Receive Date: 20160125
  Receipt Date: 20190110
  Transmission Date: 20190417
  Serious: Yes (Other)
  Sender: FDA-Public Use
  Company Number: BR-BRISTOL-MYERS SQUIBB COMPANY-BMS-2016-001773

PATIENT
  Age: 55 Year
  Sex: Male

DRUGS (1)
  1. ABATACEPT [Suspect]
     Active Substance: ABATACEPT
     Indication: RHEUMATOID ARTHRITIS
     Dosage: UNK UNK, QMO
     Route: 042
     Dates: start: 2006

REACTIONS (5)
  - Spinal column injury [Recovering/Resolving]
  - Foot fracture [Unknown]
  - Fall [Unknown]
  - Road traffic accident [Unknown]
  - Burning sensation [Unknown]

NARRATIVE: CASE EVENT DATE: 20160110
